FAERS Safety Report 4366910-9 (Version None)
Quarter: 2004Q2

REPORT INFORMATION
  Report Type: 
  Country: None (occurrence: None)
  Receive Date: 20040526
  Receipt Date: 20040526
  Transmission Date: 20050107
  Serious: Yes (Hospitalization)
  Sender: FDA-Public Use
  Company Number: None

PATIENT
  Age: 48 Year
  Sex: Female
  Weight: 86 kg

DRUGS (24)
  1. TAXOL [Suspect]
     Indication: GLOTTIS CARCINOMA
     Dosage: 195 MG Q WK
     Dates: start: 20040405
  2. TAXOL [Suspect]
     Indication: SQUAMOUS CELL CARCINOMA
     Dosage: 195 MG Q WK
     Dates: start: 20040405
  3. TAXOL [Suspect]
     Indication: GLOTTIS CARCINOMA
     Dosage: 195 MG Q WK
     Dates: start: 20040412
  4. TAXOL [Suspect]
     Indication: SQUAMOUS CELL CARCINOMA
     Dosage: 195 MG Q WK
     Dates: start: 20040412
  5. TAXOL [Suspect]
     Indication: GLOTTIS CARCINOMA
     Dosage: 195 MG Q WK
     Dates: start: 20040419
  6. TAXOL [Suspect]
     Indication: SQUAMOUS CELL CARCINOMA
     Dosage: 195 MG Q WK
     Dates: start: 20040419
  7. TAXOL [Suspect]
     Indication: GLOTTIS CARCINOMA
     Dosage: 195 MG Q WK
     Dates: start: 20040426
  8. TAXOL [Suspect]
     Indication: SQUAMOUS CELL CARCINOMA
     Dosage: 195 MG Q WK
     Dates: start: 20040426
  9. IFOSFAMIDE [Suspect]
     Indication: GLOTTIS CARCINOMA
     Dosage: 1950 MG Q WK
     Dates: start: 20040405
  10. IFOSFAMIDE [Suspect]
     Indication: SQUAMOUS CELL CARCINOMA
     Dosage: 1950 MG Q WK
     Dates: start: 20040405
  11. IFOSFAMIDE [Suspect]
     Indication: GLOTTIS CARCINOMA
     Dosage: 1950 MG Q WK
     Dates: start: 20040412
  12. IFOSFAMIDE [Suspect]
     Indication: SQUAMOUS CELL CARCINOMA
     Dosage: 1950 MG Q WK
     Dates: start: 20040412
  13. IFOSFAMIDE [Suspect]
     Indication: GLOTTIS CARCINOMA
     Dosage: 1950 MG Q WK
     Dates: start: 20040419
  14. IFOSFAMIDE [Suspect]
     Indication: SQUAMOUS CELL CARCINOMA
     Dosage: 1950 MG Q WK
     Dates: start: 20040419
  15. IFOSFAMIDE [Suspect]
     Indication: GLOTTIS CARCINOMA
     Dosage: 1950 MG Q WK
     Dates: start: 20040426
  16. IFOSFAMIDE [Suspect]
     Indication: SQUAMOUS CELL CARCINOMA
     Dosage: 1950 MG Q WK
     Dates: start: 20040426
  17. CARBOPLATIN [Suspect]
     Indication: GLOTTIS CARCINOMA
     Dosage: 350 MG Q WK
     Dates: start: 20040405
  18. CARBOPLATIN [Suspect]
     Indication: SQUAMOUS CELL CARCINOMA
     Dosage: 350 MG Q WK
     Dates: start: 20040405
  19. CARBOPLATIN [Suspect]
     Indication: GLOTTIS CARCINOMA
     Dosage: 350 MG Q WK
     Dates: start: 20040412
  20. CARBOPLATIN [Suspect]
     Indication: SQUAMOUS CELL CARCINOMA
     Dosage: 350 MG Q WK
     Dates: start: 20040412
  21. CARBOPLATIN [Suspect]
     Indication: GLOTTIS CARCINOMA
     Dosage: 350 MG Q WK
     Dates: start: 20040419
  22. CARBOPLATIN [Suspect]
     Indication: SQUAMOUS CELL CARCINOMA
     Dosage: 350 MG Q WK
     Dates: start: 20040419
  23. CARBOPLATIN [Suspect]
     Indication: GLOTTIS CARCINOMA
     Dosage: 350 MG Q WK
     Dates: start: 20040426
  24. CARBOPLATIN [Suspect]
     Indication: SQUAMOUS CELL CARCINOMA
     Dosage: 350 MG Q WK
     Dates: start: 20040426

REACTIONS (2)
  - DEVICE FAILURE [None]
  - FISTULA [None]
